FAERS Safety Report 13612136 (Version 2)
Quarter: 2017Q2

REPORT INFORMATION
  Report Type: Spontaneous
  Country: IT (occurrence: IT)
  Receive Date: 20170605
  Receipt Date: 20170626
  Transmission Date: 20170830
  Serious: Yes (Hospitalization)
  Sender: FDA-Public Use
  Company Number: IT-ALLERGAN-1722753US

PATIENT
  Age: 39 Year
  Sex: Female

DRUGS (1)
  1. NEBIVOLOL HCL - BP [Suspect]
     Active Substance: NEBIVOLOL
     Indication: HYPERTENSION
     Dosage: UNK, UNKNOWN
     Route: 065
     Dates: start: 2008

REACTIONS (2)
  - Prinzmetal angina [Recovered/Resolved]
  - Arteriospasm coronary [Unknown]

NARRATIVE: CASE EVENT DATE: 2008
